FAERS Safety Report 23472191 (Version 1)
Quarter: 2024Q1

REPORT INFORMATION
  Report Type: Spontaneous
  Country: BE (occurrence: None)
  Receive Date: 20240202
  Receipt Date: 20240202
  Transmission Date: 20240410
  Serious: Yes (Other)
  Sender: FDA-Public Use
  Company Number: 2022A310145

PATIENT
  Age: 46 Year
  Sex: Male
  Weight: 104 kg

DRUGS (7)
  1. NEXIUM [Interacting]
     Active Substance: ESOMEPRAZOLE MAGNESIUM
     Indication: Oesophagitis
     Route: 048
     Dates: start: 20220822, end: 20220829
  2. PANTOPRAZOLE SODIUM [Interacting]
     Active Substance: PANTOPRAZOLE SODIUM
     Indication: Oesophagitis
     Route: 048
     Dates: start: 20220628, end: 20220714
  3. PANTOPRAZOLE SODIUM [Interacting]
     Active Substance: PANTOPRAZOLE SODIUM
     Indication: Gastroduodenal ulcer
     Route: 048
     Dates: start: 20220628, end: 20220714
  4. PALIPERIDONE PALMITATE [Interacting]
     Active Substance: PALIPERIDONE PALMITATE
     Route: 065
  5. ZYPREXA [Interacting]
     Active Substance: OLANZAPINE
     Route: 065
  6. RIOPAN [Concomitant]
     Route: 065
  7. TEMESTA [Concomitant]
     Route: 065

REACTIONS (3)
  - Drug interaction [Recovered/Resolved]
  - Palpitations [Recovered/Resolved]
  - Hallucination, auditory [Recovered/Resolved]
